FAERS Safety Report 23170388 (Version 3)
Quarter: 2023Q4

REPORT INFORMATION
  Report Type: Spontaneous
  Country: IT (occurrence: IT)
  Receive Date: 20231110
  Receipt Date: 20231123
  Transmission Date: 20240109
  Serious: Yes (Hospitalization, Other)
  Sender: FDA-Public Use
  Company Number: IT-ROCHE-2194937

PATIENT
  Age: 55 Year
  Sex: Female
  Weight: 70 kg

DRUGS (36)
  1. DOCETAXEL [Suspect]
     Active Substance: DOCETAXEL\DOCETAXEL ANHYDROUS
     Indication: HER2 positive breast cancer
     Dosage: 75 MILLIGRAM/SQ. METER, EVERY 3 WEEK, MOST RECENT DOSE WAS RECIVED ON 14-APR-2018
     Route: 042
     Dates: start: 20171118
  2. EXEMESTANE [Suspect]
     Active Substance: EXEMESTANE
     Indication: Breast cancer
     Dosage: 25 MILLIGRAM, ONCE A DAY (MOST RECENT DOSE PRIOR TO AE 09/OCT/2020)
     Route: 048
     Dates: start: 20180713
  3. EXEMESTANE [Suspect]
     Active Substance: EXEMESTANE
     Indication: HER2 positive breast cancer
  4. GEMCITABINE [Suspect]
     Active Substance: GEMCITABINE
     Indication: HER2 positive breast cancer
     Dosage: 800 MILLIGRAM/KILOGRAM, 3 WEEKS (MOST RECENT DOSE PRIOR TO 29/JUL/2022 )
     Route: 042
     Dates: start: 20220527
  5. XELODA [Suspect]
     Active Substance: CAPECITABINE
     Indication: HER2 positive breast cancer
     Dosage: 500 MILLIGRAM (FREQUENCY: OTHER MOST RECENT DOSE PRIOR TO THE EVENT: 05/AUG/2022 )
     Route: 048
     Dates: start: 20220805
  6. PARAPLATIN [Suspect]
     Active Substance: CARBOPLATIN
     Indication: HER2 positive breast cancer
     Dosage: UNK EVERY 3 WEEKS(MOST RECENT DOSE PRIOR TO THE EVENT: 27/MAY/2022 )
     Route: 042
     Dates: start: 20220204, end: 20220225
  7. PARAPLATIN [Suspect]
     Active Substance: CARBOPLATIN
     Dosage: UNK, EVERY 3 WEEKS (MOST RECENT DOSE PRIOR TO THE EVENT: 29/JUL/20224AUC)(
     Route: 042
     Dates: start: 20220527
  8. CYTOXAN [Suspect]
     Active Substance: CYCLOPHOSPHAMIDE
     Indication: HER2 positive breast cancer
     Dosage: 600 MILLIGRAM/KILOGRAM(MOST RECENT DOSE PRIOR TO AE 20/MAY/2022 ), 3 TIMES IN A WEEK
     Route: 042
     Dates: start: 20220315
  9. FASLODEX [Suspect]
     Active Substance: FULVESTRANT
     Indication: HER2 positive breast cancer
     Dosage: 500 MILLIGRAM 3 WEEKS (MOST RECENT DOSE PRIOR TO AE 31/DEC/2021 )
     Route: 030
     Dates: start: 20210521
  10. DOXORUBICIN [Suspect]
     Active Substance: DOXORUBICIN
     Indication: HER2 positive breast cancer
     Dosage: 60 MILLIGRAM/KILOGRAM 3 WEEK (MOST RECENT DOSE PRIOR TO AE 20/MAY/2022 ), 3 TIMES IN A WEEK
     Route: 042
     Dates: start: 20220315
  11. PEMBROLIZUMAB [Suspect]
     Active Substance: PEMBROLIZUMAB
     Indication: HER2 positive breast cancer
     Dosage: 200 MILLIGRAM EVERY 3 WEEKS  (MOST RECENT DOSE PRIOR TO AE 25/FEB/2022 )
     Route: 042
     Dates: start: 20220204
  12. PERJETA [Suspect]
     Active Substance: PERTUZUMAB
     Indication: HER2 positive breast cancer
     Dosage: 840 MILLIGRAM, EVERY 3 WEEK, MOST RECENT DOSE PRIOR TO THE EVENT: 09-DEC-2017
     Route: 042
     Dates: start: 20171118, end: 20171118
  13. PERJETA [Suspect]
     Active Substance: PERTUZUMAB
     Dosage: 420 MILLIGRAM, EVERY 3 WEEK
     Route: 042
     Dates: start: 20171209, end: 20200918
  14. RIBOCICLIB [Suspect]
     Active Substance: RIBOCICLIB
     Indication: HER2 positive breast cancer
     Dosage: 200 MILLIGRAM (MOST RECENT DOSE PRIOR TO AE 14/JAN/2022 )
     Route: 048
     Dates: start: 20210618
  15. HERCEPTIN [Suspect]
     Active Substance: TRASTUZUMAB
     Indication: HER2 positive breast cancer
     Dosage: 8 MILLIGRAM/KILOGRAM, EVERY 3 WEEK, MOST RECENT DOSE PRIOR TO THE EVENT: 09/DEC/2017
     Route: 042
     Dates: start: 20171118, end: 20171118
  16. HERCEPTIN [Suspect]
     Active Substance: TRASTUZUMAB
     Dosage: 420 MILLIGRAM, 3 TIMES IN A WEEK
     Route: 042
     Dates: start: 20171209, end: 20210521
  17. HERCEPTIN [Suspect]
     Active Substance: TRASTUZUMAB
     Dosage: 6 MILLIGRAM/KILOGRAM, EVERY 3 WEEKS
     Route: 042
     Dates: start: 20171209, end: 20210521
  18. HERCEPTIN [Suspect]
     Active Substance: TRASTUZUMAB
     Dosage: 420 MILLIGRAM, 3 TIMES IN A WEEK
     Dates: start: 20220527, end: 20220729
  19. TALAZOPARIB [Suspect]
     Active Substance: TALAZOPARIB
     Indication: HER2 positive breast cancer
     Dosage: 1 MILLIGRAM, ONCE A DAY
     Route: 048
     Dates: start: 20201106, end: 20210423
  20. ALPRAZOLAM [Concomitant]
     Active Substance: ALPRAZOLAM
     Indication: Product used for unknown indication
     Dosage: UNK (ONGOING = CHECKED )
     Route: 065
     Dates: start: 20180803
  21. CETIRIZINE [Concomitant]
     Active Substance: CETIRIZINE HYDROCHLORIDE
     Indication: Product used for unknown indication
     Dosage: UNK (ONGOING = CHECKED )
     Route: 065
     Dates: start: 20190531
  22. CHLORPHENIRAMINE MALEATE [Concomitant]
     Active Substance: CHLORPHENIRAMINE MALEATE
     Indication: Product used for unknown indication
     Dosage: UNK
     Route: 065
     Dates: start: 20171118
  23. Decapeptyl [Concomitant]
     Indication: Product used for unknown indication
     Dosage: UNK
     Route: 065
     Dates: start: 20180713
  24. PREDNISONE [Concomitant]
     Active Substance: PREDNISONE
     Indication: Product used for unknown indication
     Dosage: 25 MILLIGRAM
     Route: 065
     Dates: start: 20171117, end: 20171229
  25. PREDNISONE [Concomitant]
     Active Substance: PREDNISONE
     Dosage: 25 MILLIGRAM
     Route: 065
     Dates: start: 20171230, end: 20180503
  26. DENOSUMAB [Concomitant]
     Active Substance: DENOSUMAB
     Indication: Product used for unknown indication
     Dosage: UNK
     Route: 065
     Dates: start: 20190315
  27. LORAZEPAM [Concomitant]
     Active Substance: LORAZEPAM
     Indication: Product used for unknown indication
     Dosage: UNK
     Route: 065
  28. DEXAMETHASONE [Concomitant]
     Active Substance: DEXAMETHASONE
     Indication: Product used for unknown indication
     Dosage: UNK
     Route: 065
     Dates: start: 20171118, end: 20180414
  29. Ecoval [Concomitant]
     Indication: Product used for unknown indication
     Dosage: UNK (ONGOING = CHECKED )
     Route: 065
     Dates: start: 20200424
  30. LANSOPRAZOLE [Concomitant]
     Active Substance: LANSOPRAZOLE
     Indication: Product used for unknown indication
     Dosage: UNK
     Route: 065
     Dates: start: 20171118, end: 20180414
  31. LANSOPRAZOLE [Concomitant]
     Active Substance: LANSOPRAZOLE
     Dosage: UNK
     Route: 065
     Dates: start: 20171208
  32. LEVOSULPIRIDE [Concomitant]
     Active Substance: LEVOSULPIRIDE
     Indication: Product used for unknown indication
     Dosage: UNK
     Route: 065
     Dates: start: 20171118, end: 20180414
  33. LOPERAMIDE [Concomitant]
     Active Substance: LOPERAMIDE
     Indication: Diarrhoea
     Dosage: UNK
     Route: 065
     Dates: start: 20171119
  34. VEA LIPOGEL [Concomitant]
     Indication: Product used for unknown indication
     Dosage: UNK
     Route: 065
     Dates: start: 20190215
  35. DEXAMETHASONE SODIUM PHOSPHATE [Concomitant]
     Active Substance: DEXAMETHASONE SODIUM PHOSPHATE
     Indication: Product used for unknown indication
     Dosage: ONGOING = CHECKED
     Route: 065
     Dates: start: 20220922
  36. ONDANSETRON [Concomitant]
     Active Substance: ONDANSETRON
     Indication: Product used for unknown indication
     Dosage: ONGOING = NOT CHECKED
     Route: 065
     Dates: start: 20210514, end: 20220729

REACTIONS (6)
  - Pneumonitis [Recovered/Resolved]
  - Paraesthesia [Recovered/Resolved]
  - Diarrhoea [Recovered/Resolved]
  - Nail disorder [Recovered/Resolved]
  - Pyrexia [Recovered/Resolved]
  - Rash [Recovered/Resolved]

NARRATIVE: CASE EVENT DATE: 20171119
